FAERS Safety Report 5951626-5 (Version None)
Quarter: 2008Q4

REPORT INFORMATION
  Report Type: 
  Country: None (occurrence: None)
  Receive Date: 20081113
  Receipt Date: 20081111
  Transmission Date: 20090506
  Serious: Yes (Death, Other)
  Sender: FDA-Public Use
  Company Number: PHBS2008FR06275

PATIENT
  Age: 53 Year
  Sex: Male

DRUGS (3)
  1. CYCLOSPORINE [Suspect]
     Indication: HEART TRANSPLANT
     Dosage: 140 MG/DAY
  2. MYCOPHENOLATE MOFETIL [Suspect]
     Indication: HEART TRANSPLANT
     Dosage: 1.5 G/DAY
  3. ANTI-THYMOCYTE GLOBULIN NOS [Suspect]
     Indication: HEART TRANSPLANT
     Dosage: 575 MG, CUMULATIVE DOSE

REACTIONS (17)
  - ALTERED STATE OF CONSCIOUSNESS [None]
  - ASPERGILLOSIS [None]
  - BACTERAEMIA [None]
  - BRAIN ABSCESS [None]
  - BRONCHITIS BACTERIAL [None]
  - BRONCHOPULMONARY ASPERGILLOSIS [None]
  - CARDIAC TAMPONADE [None]
  - EMBOLISM [None]
  - ENDOPHTHALMITIS [None]
  - EYE INFECTION BACTERIAL [None]
  - FUNGAL ENDOCARDITIS [None]
  - MULTI-ORGAN FAILURE [None]
  - NEUROLOGICAL SYMPTOM [None]
  - PERICARDIAL EFFUSION [None]
  - PNEUMONIA BACTERIAL [None]
  - STAPHYLOCOCCAL INFECTION [None]
  - SURGERY [None]
